APPROVED DRUG PRODUCT: FLUCONAZOLE
Active Ingredient: FLUCONAZOLE
Strength: 200MG
Dosage Form/Route: TABLET;ORAL
Application: A209146 | Product #004
Applicant: LUPIN LTD
Approved: Oct 20, 2023 | RLD: No | RS: No | Type: DISCN